FAERS Safety Report 7725378-2 (Version None)
Quarter: 2011Q3

REPORT INFORMATION
  Report Type: 
  Country: None (occurrence: None)
  Receive Date: 20110829
  Receipt Date: 20110818
  Transmission Date: 20111222
  Serious: Yes (Hospitalization)
  Sender: FDA-Public Use
  Company Number: VISP-NO-1108S-0323

PATIENT
  Age: 85 Year
  Sex: Female

DRUGS (6)
  1. VISIPAQUE [Suspect]
     Indication: PRODUCT USED FOR UNKNOWN INDICATION
     Dosage: 16 ML, SINGLE DOSE, INTRATHECAL
     Route: 037
     Dates: start: 20110729, end: 20110729
  2. ZESTRIL [Concomitant]
  3. ASPIRIN [Concomitant]
  4. APROVEL (IRBESARTAN) [Concomitant]
  5. TENSTATEN (CICLETANINE HYDROCHLORIDE) [Concomitant]
  6. ARIMIDEX [Concomitant]

REACTIONS (5)
  - VOMITING PROJECTILE [None]
  - HYPOTHERMIA [None]
  - HALLUCINATION [None]
  - NEUROTOXICITY [None]
  - NAUSEA [None]
